FAERS Safety Report 12110062 (Version 1)
Quarter: 2016Q1

REPORT INFORMATION
  Report Type: Spontaneous
  Country: GB (occurrence: GB)
  Receive Date: 20160224
  Receipt Date: 20160224
  Transmission Date: 20160526
  Serious: Yes (Life-Threatening)
  Sender: FDA-Public Use
  Company Number: GB-JNJFOC-20160221603

PATIENT
  Age: 81 Year
  Sex: Male
  Weight: 93 kg

DRUGS (2)
  1. XARELTO [Suspect]
     Active Substance: RIVAROXABAN
     Indication: ATRIAL FIBRILLATION
     Route: 048
     Dates: start: 20160128, end: 20160210
  2. XARELTO [Suspect]
     Active Substance: RIVAROXABAN
     Indication: CEREBROVASCULAR ACCIDENT PROPHYLAXIS
     Route: 048
     Dates: start: 20160128, end: 20160210

REACTIONS (3)
  - Peripheral swelling [Unknown]
  - Treatment failure [Recovering/Resolving]
  - Deep vein thrombosis [Unknown]

NARRATIVE: CASE EVENT DATE: 20160201
